FAERS Safety Report 5435631-3 (Version None)
Quarter: 2007Q3

REPORT INFORMATION
  Report Type: 
  Country: None (occurrence: None)
  Receive Date: 20070831
  Receipt Date: 20070820
  Transmission Date: 20080115
  Serious: No
  Sender: FDA-Public Use
  Company Number: A0671438A

PATIENT
  Age: 27 Year

DRUGS (1)
  1. ALLI [Suspect]

REACTIONS (2)
  - GASTROINTESTINAL DISORDER [None]
  - INSOMNIA [None]
